FAERS Safety Report 5937356-4 (Version None)
Quarter: 2008Q4

REPORT INFORMATION
  Report Type: 
  Country: None (occurrence: None)
  Receive Date: 20081021
  Receipt Date: 20071114
  Transmission Date: 20090506
  Serious: Yes (Other)
  Sender: FDA-Public Use
  Company Number: US-WYE-H01278007

PATIENT
  Age: 61 Year
  Sex: Female
  Weight: 72.64 kg

DRUGS (4)
  1. PREMARIN [Suspect]
     Indication: HOT FLUSH
     Dosage: 1 TABLET 1X PER 1 DAY, ORAL
     Route: 048
     Dates: start: 19870101
  2. SYNTHROID [Concomitant]
  3. ZETIA [Concomitant]
  4. NEXIUM [Concomitant]

REACTIONS (3)
  - CONTUSION [None]
  - PAIN IN EXTREMITY [None]
  - THROMBOSIS [None]
